FAERS Safety Report 8912516 (Version 2)
Quarter: 2012Q4

REPORT INFORMATION
  Report Type: 
  Country: DE (occurrence: DE)
  Receive Date: 20121116
  Receipt Date: 20121120
  Transmission Date: 20130627
  Serious: Yes (Death)
  Sender: FDA-Public Use
  Company Number: DE-ROCHE-1148040

PATIENT
  Age: 85 Year
  Sex: Female
  Weight: 55 kg

DRUGS (2)
  1. ALTEPLASE [Suspect]
     Indication: CEREBRAL INFARCTION
     Route: 042
     Dates: start: 20121016
  2. ALTEPLASE [Suspect]
     Indication: ISCHAEMIC STROKE

REACTIONS (2)
  - Cerebral haemorrhage [Fatal]
  - Product quality issue [Unknown]
